FAERS Safety Report 24733783 (Version 2)
Quarter: 2025Q2

REPORT INFORMATION
  Report Type: Spontaneous
  Country: US (occurrence: US)
  Receive Date: 20241214
  Receipt Date: 20250422
  Transmission Date: 20250716
  Serious: No
  Sender: ALEXION PHARMACEUTICALS
  Company Number: US-AstraZeneca-CH-00768357AP

PATIENT

DRUGS (1)
  1. BREZTRI [Suspect]
     Active Substance: BUDESONIDE\FORMOTEROL\GLYCOPYRROLATE
     Route: 065

REACTIONS (8)
  - Device malfunction [Unknown]
  - Device use issue [Unknown]
  - Wrong technique in product usage process [Unknown]
  - Coating in mouth [Unknown]
  - Device difficult to use [Unknown]
  - Product dose omission issue [Unknown]
  - Malaise [Unknown]
  - Device delivery system issue [Unknown]
